FAERS Safety Report 18230158 (Version 5)
Quarter: 2022Q2

REPORT INFORMATION
  Report Type: Report from Study
  Country: US (occurrence: US)
  Receive Date: 20200904
  Receipt Date: 20220608
  Transmission Date: 20220720
  Serious: Yes (Hospitalization)
  Sender: FDA-Public Use
  Company Number: US-SHIRE-US202028518

PATIENT
  Sex: Female
  Weight: 62.14 kg

DRUGS (32)
  1. HUMAN IMMUNOGLOBULIN G [Suspect]
     Active Substance: HUMAN IMMUNOGLOBULIN G
     Indication: Immunodeficiency common variable
     Dosage: 20 GRAM, Q4WEEKS
     Route: 042
     Dates: start: 20190826
  2. HUMAN IMMUNOGLOBULIN G [Suspect]
     Active Substance: HUMAN IMMUNOGLOBULIN G
     Dosage: 15 GRAM, Q4WEEKS
     Route: 042
     Dates: start: 20190826
  3. HUMAN IMMUNOGLOBULIN G [Suspect]
     Active Substance: HUMAN IMMUNOGLOBULIN G
     Dosage: UNK
     Route: 042
     Dates: start: 20220322
  4. HUMAN IMMUNOGLOBULIN G [Suspect]
     Active Substance: HUMAN IMMUNOGLOBULIN G
     Dosage: UNK
     Route: 042
     Dates: start: 20220419
  5. DIPHENHYDRAMINE [Concomitant]
     Active Substance: DIPHENHYDRAMINE
  6. BUPROPION [Concomitant]
     Active Substance: BUPROPION
  7. SCOPOLAMINE [Concomitant]
     Active Substance: SCOPOLAMINE
  8. HYOSCYAMINE [Concomitant]
     Active Substance: HYOSCYAMINE
     Route: 065
  9. SODIUM CHLORIDE [Concomitant]
     Active Substance: SODIUM CHLORIDE
     Route: 065
  10. EPINEPHRINE [Concomitant]
     Active Substance: EPINEPHRINE
     Route: 065
  11. EZETIMIBE [Concomitant]
     Active Substance: EZETIMIBE
  12. HALOBETASOL PROP [Concomitant]
  13. ONDANSETRON HCL [Concomitant]
     Active Substance: ONDANSETRON HYDROCHLORIDE
     Route: 065
  14. HUMALOG [Concomitant]
     Active Substance: INSULIN LISPRO
     Route: 065
  15. OMEPRAZOLE [Concomitant]
     Active Substance: OMEPRAZOLE
     Route: 065
  16. VITAMIN D3 [Concomitant]
     Active Substance: CHOLECALCIFEROL
  17. ACETAMINOPHEN [Concomitant]
     Active Substance: ACETAMINOPHEN
     Route: 065
  18. PROZAC [Concomitant]
     Active Substance: FLUOXETINE HYDROCHLORIDE
     Route: 065
  19. ALPRAZOLAM [Concomitant]
     Active Substance: ALPRAZOLAM
     Route: 065
  20. TOPAMAX [Concomitant]
     Active Substance: TOPIRAMATE
     Route: 065
  21. BASAGLAR [Concomitant]
     Active Substance: INSULIN GLARGINE
     Route: 065
  22. NEURONTIN [Concomitant]
     Active Substance: GABAPENTIN
     Route: 065
  23. ERGOCALCIFEROL [Concomitant]
     Active Substance: ERGOCALCIFEROL
     Route: 065
  24. LMX [AMOXICILLIN TRIHYDRATE;BACILLUS COAGULANS] [Concomitant]
     Route: 065
  25. FLUOROMETHOLONE [Concomitant]
     Active Substance: FLUOROMETHOLONE
  26. CREON [Concomitant]
     Active Substance: PANCRELIPASE AMYLASE\PANCRELIPASE LIPASE\PANCRELIPASE PROTEASE
     Route: 065
  27. Lmx [Concomitant]
  28. MUPIROCIN [Concomitant]
     Active Substance: MUPIROCIN
  29. DOMPERIDONE [Concomitant]
     Active Substance: DOMPERIDONE
     Route: 065
  30. DIPHENHYDRAMINE CITRATE;PARACETAMOL [Concomitant]
     Route: 065
  31. WELLBUTRIN [Concomitant]
     Active Substance: BUPROPION HYDROCHLORIDE
     Route: 065
  32. HYOSCYAMINE SULFATE [Concomitant]
     Active Substance: HYOSCYAMINE SULFATE
     Route: 065

REACTIONS (8)
  - Tooth infection [Unknown]
  - Infusion related reaction [Unknown]
  - Headache [Recovered/Resolved]
  - Fatigue [Recovered/Resolved]
  - Hepatic enzyme increased [Unknown]
  - Pain [Unknown]
  - Incorrect drug administration rate [Unknown]
  - Multiple allergies [Unknown]
